FAERS Safety Report 6398168-3 (Version None)
Quarter: 2009Q3

REPORT INFORMATION
  Report Type: 
  Country: None (occurrence: None)
  Receive Date: 20090921
  Receipt Date: 20090911
  Transmission Date: 20100115
  Serious: Yes (Death)
  Sender: FDA-Public Use
  Company Number: THYM-1001202

PATIENT
  Age: 74 Year
  Sex: Male
  Weight: 60 kg

DRUGS (5)
  1. THYMOGLOBULIN [Suspect]
     Indication: APLASTIC ANAEMIA
     Dosage: 3.5 MG/KG, QD, INTRAVENOUS
     Route: 042
     Dates: start: 20090727, end: 20090731
  2. CEFEPIME HYDROCHLORIDE [Concomitant]
  3. CYCLOSPORINE [Concomitant]
  4. OLMESARTAN MEDOXOMIL [Concomitant]
  5. ITRACONAZOLE [Concomitant]

REACTIONS (1)
  - CARDIAC FAILURE ACUTE [None]
